FAERS Safety Report 8173141-3 (Version None)
Quarter: 2012Q1

REPORT INFORMATION
  Report Type: 
  Country: None (occurrence: None)
  Receive Date: 20120229
  Receipt Date: 20110224
  Transmission Date: 20120608
  Serious: No
  Sender: FDA-Public Use
  Company Number: US-GLAXOSMITHKLINE-A0916604A

PATIENT
  Sex: Female

DRUGS (2)
  1. IMITREX [Suspect]
     Indication: MIGRAINE
     Dosage: .5ML UNKNOWN
     Route: 058
  2. SUMATRIPTAN SUCCINATE [Suspect]

REACTIONS (4)
  - INJECTION SITE HAEMATOMA [None]
  - INJECTION SITE SWELLING [None]
  - PRODUCT QUALITY ISSUE [None]
  - INJECTION SITE PAIN [None]
